FAERS Safety Report 9904223 (Version 2)
Quarter: 2014Q1

REPORT INFORMATION
  Report Type: Report from Study
  Country: BR (occurrence: BR)
  Receive Date: 20140218
  Receipt Date: 20140218
  Transmission Date: 20141002
  Serious: Yes (Other)
  Sender: FDA-Public Use
  Company Number: BR-ROCHE-1214682

PATIENT
  Sex: Female
  Weight: 68 kg

DRUGS (3)
  1. MABTHERA [Suspect]
     Indication: RHEUMATOID ARTHRITIS
     Route: 042
     Dates: start: 20130322
  2. NALTREXONE [Concomitant]
  3. TORAGESIC [Concomitant]

REACTIONS (13)
  - Hypersensitivity [Recovered/Resolved]
  - Pharyngeal cyst [Unknown]
  - Blood pressure decreased [Recovered/Resolved]
  - Rash [Unknown]
  - Spinal pain [Unknown]
  - Pain in extremity [Unknown]
  - Sluggishness [Recovered/Resolved]
  - Dizziness [Recovered/Resolved]
  - Pain [Recovered/Resolved]
  - Sinusitis [Unknown]
  - Influenza [Unknown]
  - Ear pain [Unknown]
  - Hearing impaired [Unknown]
